FAERS Safety Report 6549955 (Version 11)
Quarter: 2014Q4

REPORT INFORMATION
  Report Type: Spontaneous
  Country: US (occurrence: US)
  Receive Date: 20080211
  Receipt Date: 20141219
  Transmission Date: 20150529
  Serious: Yes (Hospitalization, Other)
  Sender: FDA-Public Use
  Company Number: US-ROCHE-512840

PATIENT
  Age: 17 Year
  Sex: Female
  Weight: 63.5 kg

DRUGS (3)
  1. ACCUTANE [Suspect]
     Active Substance: ISOTRETINOIN
     Indication: ACNE
     Route: 048
     Dates: start: 199410, end: 19950330
  2. ALBUTEROL. [Concomitant]
     Active Substance: ALBUTEROL
     Indication: ASTHMA
     Route: 055
  3. ACCUTANE [Suspect]
     Active Substance: ISOTRETINOIN
     Route: 048
     Dates: start: 19970313, end: 19970526

REACTIONS (18)
  - Chronic sinusitis [Unknown]
  - Rhinitis [Unknown]
  - Calculus ureteric [Recovering/Resolving]
  - Oophorectomy [Unknown]
  - Anxiety [Not Recovered/Not Resolved]
  - Depression [Not Recovered/Not Resolved]
  - Inflammatory bowel disease [Unknown]
  - Nasal septum deviation [Recovered/Resolved]
  - Crohn^s disease [Recovering/Resolving]
  - Sunburn [Unknown]
  - Infertility [Unknown]
  - Colitis [Unknown]
  - Colitis ulcerative [Unknown]
  - Endometriosis [Unknown]
  - Hyperaesthesia [Unknown]
  - Ovarian cyst [Recovered/Resolved]
  - Oligomenorrhoea [Unknown]
  - Uterine polyp [Recovered/Resolved]

NARRATIVE: CASE EVENT DATE: 19950420
